FAERS Safety Report 9916098 (Version 1)
Quarter: 2014Q1

REPORT INFORMATION
  Report Type: Spontaneous
  Country: GB (occurrence: GB)
  Receive Date: 20140221
  Receipt Date: 20140221
  Transmission Date: 20141002
  Serious: Yes (Hospitalization, Other)
  Sender: FDA-Public Use
  Company Number: GB-BAYER-2014-025427

PATIENT
  Age: 40 Year
  Sex: Female
  Weight: 69.85 kg

DRUGS (3)
  1. MIRENA [Suspect]
     Indication: CONTRACEPTION
     Dosage: UNK
     Dates: start: 20140120
  2. CALCICHEW D3 [Concomitant]
  3. FERROUS FUMARATE [Concomitant]

REACTIONS (3)
  - Abdominal pain [Recovering/Resolving]
  - Complication of device insertion [Unknown]
  - Gastric ulcer perforation [Recovering/Resolving]
